FAERS Safety Report 8091913-0 (Version None)
Quarter: 2012Q1

REPORT INFORMATION
  Report Type: 
  Country: None (occurrence: None)
  Receive Date: 20120129
  Receipt Date: 20111206
  Transmission Date: 20120608
  Serious: Yes (Other)
  Sender: FDA-Public Use
  Company Number: US-ABBOTT-11P-163-0881308-00

PATIENT
  Age: 72 Year
  Sex: Female

DRUGS (3)
  1. HUMIRA [Suspect]
     Indication: RHEUMATOID ARTHRITIS
  2. COD LIVER OIL [Concomitant]
     Indication: SUPPLEMENTATION THERAPY
  3. FERROUS IRON [Concomitant]
     Indication: MINERAL SUPPLEMENTATION

REACTIONS (5)
  - FEMUR FRACTURE [None]
  - FALL [None]
  - INJECTION SITE PAIN [None]
  - HYPERTENSION [None]
  - THROMBOSIS [None]
